FAERS Safety Report 7083715-9 (Version None)
Quarter: 2010Q4

REPORT INFORMATION
  Report Type: 
  Country: None (occurrence: None)
  Receive Date: 20101104
  Receipt Date: 20101021
  Transmission Date: 20110411
  Serious: No
  Sender: FDA-Public Use
  Company Number: CA-ELI_LILLY_AND_COMPANY-CA201009007969

PATIENT
  Age: 66 Year
  Sex: Male
  Weight: 57 kg

DRUGS (16)
  1. FORTEO [Suspect]
     Indication: OSTEOPOROSIS
     Dosage: 20 UG, DAILY (1/D)
     Dates: start: 20100815
  2. FORTEO [Suspect]
     Dosage: 20 UG, DAILY (1/D)
     Dates: start: 20100817
  3. SPIRIVA [Concomitant]
  4. FLOVENT [Concomitant]
  5. ALBUTEROL [Concomitant]
  6. LOPRESSOR [Concomitant]
  7. ZANTAC [Concomitant]
  8. DOMPERIDONE [Concomitant]
  9. PARIET [Concomitant]
  10. RAMIPRIL [Concomitant]
  11. VITAMIN D [Concomitant]
  12. IMOVANE [Concomitant]
  13. CALCIUM [Concomitant]
  14. CENTRUM [Concomitant]
  15. FLAGYL [Concomitant]
     Indication: LUNG ABSCESS
     Dates: end: 20100920
  16. CEFUROXIME [Concomitant]
     Indication: LUNG ABSCESS
     Dates: end: 20100920

REACTIONS (1)
  - DRUG HYPERSENSITIVITY [None]
